FAERS Safety Report 9299242 (Version 1)
Quarter: 2013Q2

REPORT INFORMATION
  Report Type: Spontaneous
  Country: US (occurrence: US)
  Receive Date: 20130520
  Receipt Date: 20130520
  Transmission Date: 20140414
  Serious: Yes (Hospitalization)
  Sender: FDA-Public Use
  Company Number: US-TEVA-405555USA

PATIENT
  Sex: 0

DRUGS (1)
  1. SYNRIBO [Suspect]

REACTIONS (1)
  - Sepsis [Unknown]
